FAERS Safety Report 4668635-9 (Version None)
Quarter: 2005Q2

REPORT INFORMATION
  Report Type: 
  Country: None (occurrence: None)
  Receive Date: 20050523
  Receipt Date: 20041108
  Transmission Date: 20051028
  Serious: Yes (Other)
  Sender: FDA-Public Use
  Company Number: PHNU2004DE03797

PATIENT
  Sex: Male

DRUGS (2)
  1. ZOMETA [Suspect]
     Indication: METASTASES TO BONE
     Dosage: 4 MG, QMO
     Dates: start: 20040101
  2. DOCETAXEL [Concomitant]
     Dates: start: 20041001

REACTIONS (3)
  - HALITOSIS [None]
  - OSTEONECROSIS [None]
  - TOOTH EXTRACTION [None]
